FAERS Safety Report 21918725 (Version 1)
Quarter: 2023Q1

REPORT INFORMATION
  Report Type: Spontaneous
  Country: CA (occurrence: CA)
  Receive Date: 20230127
  Receipt Date: 20230127
  Transmission Date: 20230418
  Serious: Yes (Death, Hospitalization, Other)
  Sender: FDA-Public Use
  Company Number: CA-MLMSERVICE-20170830-0873392-1

PATIENT
  Age: 18 Year
  Sex: Female
  Weight: 63 kg

DRUGS (6)
  1. ACETAMINOPHEN [Suspect]
     Active Substance: ACETAMINOPHEN
     Indication: Suicide attempt
     Dosage: APPROXIMATELY 40 PILLS OF UNSPECIFIED STRENGTH
     Route: 048
  2. ASPIRIN [Suspect]
     Active Substance: ASPIRIN
     Indication: Suicide attempt
     Dosage: APPROXIMATELY 15 PILLS OF UNSPECIFIED STRENGTH
     Route: 048
  3. QUETIAPINE [Suspect]
     Active Substance: QUETIAPINE
     Indication: Suicide attempt
     Dosage: APPROXIMATELY 20 PILLS
     Route: 048
  4. ATOMOXETINE [Concomitant]
     Active Substance: ATOMOXETINE
     Indication: Product used for unknown indication
     Dosage: 60 MG, QD
     Route: 065
  5. CITALOPRAM [Concomitant]
     Active Substance: CITALOPRAM HYDROBROMIDE
     Indication: Product used for unknown indication
     Dosage: 20 MG, QD
     Route: 065
  6. ISONIAZID [Concomitant]
     Active Substance: ISONIAZID
     Indication: Product used for unknown indication
     Dosage: 300 MG QD
     Route: 065

REACTIONS (7)
  - Myocarditis [Fatal]
  - Cardiac arrest [Fatal]
  - Toxicity to various agents [Fatal]
  - Intentional overdose [Fatal]
  - Hepatic failure [Recovering/Resolving]
  - Encephalopathy [Recovering/Resolving]
  - Atrial fibrillation [Recovering/Resolving]
